FAERS Safety Report 10392373 (Version 13)
Quarter: 2019Q1

REPORT INFORMATION
  Report Type: Report from Study
  Country: ES (occurrence: ES)
  Receive Date: 20140819
  Receipt Date: 20190130
  Transmission Date: 20190417
  Serious: Yes (Life-Threatening, Hospitalization)
  Sender: FDA-Public Use
  Company Number: ES-ROCHE-1446634

PATIENT
  Age: 77 Year
  Sex: Female
  Weight: 66 kg

DRUGS (37)
  1. OBINUTUZUMAB. [Suspect]
     Active Substance: OBINUTUZUMAB
     Dosage: C1D8?THERAPY WAS TEMPORARILY INTERRUPTED ON 15/AUG/2014.
     Route: 042
     Dates: start: 20140808, end: 20140808
  2. OBINUTUZUMAB. [Suspect]
     Active Substance: OBINUTUZUMAB
     Dosage: C1D8?THERAPY WAS RESTARTED ON 27/AUG/2014.
     Route: 042
     Dates: start: 20140827, end: 20140827
  3. NOLOTIL [Concomitant]
     Route: 042
     Dates: start: 20140801, end: 20140802
  4. ALOPURINOL [Concomitant]
     Active Substance: ALLOPURINOL
     Route: 048
  5. RASBURICASA [Concomitant]
     Route: 065
     Dates: start: 20160418, end: 20160422
  6. HIDROCORTISONA [Concomitant]
     Active Substance: HYDROCORTISONE
     Route: 065
     Dates: start: 20160420, end: 20160420
  7. VALIUM [Concomitant]
     Active Substance: DIAZEPAM
     Route: 065
     Dates: start: 20160421
  8. ACICLOVIR [Concomitant]
     Active Substance: ACYCLOVIR
     Route: 048
  9. METHOTREXATE. [Concomitant]
     Active Substance: METHOTREXATE
     Route: 065
     Dates: start: 20160420, end: 20160420
  10. PLATELETS [Concomitant]
     Active Substance: HUMAN PLATELET, ALLOGENIC
     Route: 065
     Dates: start: 20160307, end: 20160307
  11. OBINUTUZUMAB. [Suspect]
     Active Substance: OBINUTUZUMAB
     Indication: CHRONIC LYMPHOCYTIC LEUKAEMIA
     Dosage: SPLIT DOSE (100+900) ON DAY 1 AND DAY 2?C1D1
     Route: 042
     Dates: start: 20140801, end: 20140801
  12. POLARAMINE [Concomitant]
     Active Substance: DEXCHLORPHENIRAMINE MALEATE
     Route: 042
     Dates: start: 20140801, end: 20150115
  13. PARACETAMOL [Concomitant]
     Active Substance: ACETAMINOPHEN
     Route: 065
     Dates: start: 20160307, end: 20160310
  14. PARACETAMOL [Concomitant]
     Active Substance: ACETAMINOPHEN
     Route: 042
     Dates: start: 20140801, end: 20150115
  15. POTASSIUM CHLORIDE. [Concomitant]
     Active Substance: POTASSIUM CHLORIDE
     Route: 042
     Dates: start: 20160307, end: 20160314
  16. AMIKACINA [Concomitant]
     Active Substance: AMIKACIN SULFATE
     Route: 065
     Dates: start: 20160308, end: 20160313
  17. DEPAKINE [Concomitant]
     Active Substance: VALPROATE SODIUM
     Route: 065
     Dates: start: 20160421
  18. MIDAZOLAM [Concomitant]
     Active Substance: MIDAZOLAM HYDROCHLORIDE
     Route: 065
     Dates: start: 20160421
  19. NYSTATIN. [Concomitant]
     Active Substance: NYSTATIN
     Dosage: MOUTH WASH (BUCAL)
     Route: 048
     Dates: start: 20140801, end: 20150123
  20. URBASON [Concomitant]
     Active Substance: METHYLPREDNISOLONE
     Route: 042
     Dates: start: 20140801, end: 20150115
  21. GRANISETRON [Concomitant]
     Active Substance: GRANISETRON
     Route: 042
     Dates: start: 20140801, end: 20150115
  22. AMIKACINA [Concomitant]
     Active Substance: AMIKACIN SULFATE
     Route: 065
     Dates: start: 20160308, end: 20160314
  23. OBINUTUZUMAB. [Suspect]
     Active Substance: OBINUTUZUMAB
     Dosage: C1D2
     Route: 042
     Dates: start: 20140802, end: 20140802
  24. BENDAMUSTINE [Suspect]
     Active Substance: BENDAMUSTINE
     Indication: CHRONIC LYMPHOCYTIC LEUKAEMIA
     Dosage: PLANNED DOSE: 70 MG/M2?C1D1
     Route: 042
     Dates: start: 20140801, end: 20140801
  25. BENDAMUSTINE [Suspect]
     Active Substance: BENDAMUSTINE
     Dosage: C1D2 THE CONTINUED AS PER PROTOCOL.
     Route: 042
     Dates: start: 20140802, end: 20140802
  26. ORALDINE [Concomitant]
     Dosage: MOUTH WASH
     Route: 048
     Dates: start: 20140801, end: 20150123
  27. METAMIZOL [Concomitant]
     Active Substance: METAMIZOLE SODIUM
     Route: 042
     Dates: start: 20140801, end: 20140801
  28. METAMIZOL [Concomitant]
     Active Substance: METAMIZOLE SODIUM
     Route: 042
     Dates: start: 20140802, end: 20140802
  29. ACETILCISTEINA [Concomitant]
     Active Substance: ACETYLCYSTEINE
     Route: 065
     Dates: start: 20160418, end: 20160422
  30. CYTARABINE. [Concomitant]
     Active Substance: CYTARABINE
     Route: 065
     Dates: start: 20160420, end: 20160420
  31. URBASON [Concomitant]
     Active Substance: METHYLPREDNISOLONE
     Route: 065
     Dates: start: 20160421
  32. BUSCAPINE [Concomitant]
     Active Substance: BUTYLSCOPOLAMINE
     Route: 065
     Dates: start: 20160421
  33. FUROSEMIDA [Concomitant]
     Active Substance: FUROSEMIDE
     Route: 065
     Dates: start: 20160421
  34. SEGURIL [Concomitant]
     Active Substance: FUROSEMIDE
     Route: 042
     Dates: start: 20140801, end: 20140801
  35. OMEPRAZOL [Concomitant]
     Active Substance: OMEPRAZOLE
     Route: 048
  36. CEFTAZIDIMA [Concomitant]
     Active Substance: CEFTAZIDIME
     Route: 042
     Dates: start: 20160307, end: 20160313
  37. MORPHINE [Concomitant]
     Active Substance: MORPHINE
     Route: 065
     Dates: start: 20160421

REACTIONS (1)
  - Febrile neutropenia [Recovered/Resolved]

NARRATIVE: CASE EVENT DATE: 20140802
